FAERS Safety Report 11681660 (Version 1)
Quarter: 2015Q4

REPORT INFORMATION
  Report Type: Spontaneous
  Country: US (occurrence: None)
  Receive Date: 20151028
  Receipt Date: 20151028
  Transmission Date: 20160304
  Serious: Yes (Other)
  Sender: FDA-Public Use
  Company Number: None

PATIENT
  Age: 60 Year
  Sex: Female
  Weight: 86.18 kg

DRUGS (12)
  1. MINOCYCLINE [Suspect]
     Active Substance: MINOCYCLINE\MINOCYCLINE HYDROCHLORIDE
     Indication: DERMATITIS
     Route: 048
     Dates: start: 20151020, end: 20151027
  2. NITROSTAT [Concomitant]
     Active Substance: NITROGLYCERIN
  3. LISINOPRIL. [Concomitant]
     Active Substance: LISINOPRIL
  4. LORATADINE. [Concomitant]
     Active Substance: LORATADINE
  5. METOPROLOL TARTRATE. [Concomitant]
     Active Substance: METOPROLOL TARTRATE
  6. BETADINE SKIN CLEANSER [Suspect]
     Active Substance: POVIDONE-IODINE
     Indication: DERMATITIS
     Dosage: ENOUGH TO FOAM, APPLIED TO A SURFACE USUALLY THE SKIN
     Route: 061
     Dates: start: 20151020, end: 20151027
  7. ISOSORBIDE MONO [Concomitant]
  8. ACYCLOVIR. [Concomitant]
     Active Substance: ACYCLOVIR
  9. ASPIRIN. [Concomitant]
     Active Substance: ASPIRIN
  10. NON-LAXATIVE STOOL SOFTENER [Concomitant]
  11. COD LIVER OIL [Concomitant]
     Active Substance: COD LIVER OIL
  12. ALPRAZOLAM. [Concomitant]
     Active Substance: ALPRAZOLAM

REACTIONS (1)
  - Body temperature abnormal [None]

NARRATIVE: CASE EVENT DATE: 20151020
